FAERS Safety Report 5932429-4 (Version None)
Quarter: 2008Q4

REPORT INFORMATION
  Report Type: 
  Country: None (occurrence: None)
  Receive Date: 20081027
  Receipt Date: 20081027
  Transmission Date: 20090506
  Serious: No
  Sender: FDA-Public Use
  Company Number: None

PATIENT
  Sex: Male
  Weight: 77.1115 kg

DRUGS (1)
  1. ZOLPIDEM [Suspect]
     Indication: INSOMNIA
     Dosage: 5 MG  AS NEEDED PO
     Route: 048
     Dates: start: 20080510, end: 20080517

REACTIONS (3)
  - ANXIETY [None]
  - COLD SWEAT [None]
  - FEELING COLD [None]
